FAERS Safety Report 5677467-4 (Version None)
Quarter: 2008Q1

REPORT INFORMATION
  Report Type: 
  Country: None (occurrence: None)
  Receive Date: 20080324
  Receipt Date: 20080312
  Transmission Date: 20080703
  Serious: Yes (Hospitalization, Other)
  Sender: FDA-Public Use
  Company Number: US-PFIZER INC-2008016680

PATIENT
  Sex: Female
  Weight: 45 kg

DRUGS (3)
  1. CHANTIX [Suspect]
     Indication: SMOKING CESSATION THERAPY
     Route: 048
     Dates: start: 20080207, end: 20080218
  2. METOPROLOL TARTRATE [Concomitant]
     Indication: HYPERTENSION
  3. BENAZEPRIL HYDROCHLORIDE [Concomitant]
     Indication: HYPERTENSION

REACTIONS (3)
  - PHARYNGOLARYNGEAL PAIN [None]
  - SPEECH DISORDER [None]
  - SWOLLEN TONGUE [None]
